FAERS Safety Report 13565627 (Version 1)
Quarter: 2017Q2

REPORT INFORMATION
  Report Type: Spontaneous
  Country: US (occurrence: US)
  Receive Date: 20170519
  Receipt Date: 20170519
  Transmission Date: 20170830
  Serious: No
  Sender: FDA-Public Use
  Company Number: US-BION-20160081

PATIENT
  Age: 61 Year
  Sex: Female
  Weight: 99.79 kg

DRUGS (6)
  1. MAGNESIUM UNKNOWN [Concomitant]
     Indication: MINERAL SUPPLEMENTATION
     Dosage: DAILY
  2. MOTRIN IB [Suspect]
     Active Substance: IBUPROFEN
     Indication: ANALGESIC THERAPY
     Route: 048
     Dates: start: 20160101
  3. EMERGEN-C VITAMIN [Concomitant]
     Indication: VITAMIN SUPPLEMENTATION
     Dosage: 2-3X WEEKLY
  4. VITAMIN B12 UNKNOWN [Concomitant]
     Indication: VITAMIN SUPPLEMENTATION
     Dosage: DAILY
  5. NATURE MADE 50+ MULTI VITAMIN [Concomitant]
     Indication: VITAMIN SUPPLEMENTATION
     Dosage: DAILY
  6. VITAMIN D UNKNOWN [Concomitant]
     Indication: VITAMIN D DEFICIENCY

REACTIONS (1)
  - Drug ineffective [Not Recovered/Not Resolved]
